FAERS Safety Report 9036553 (Version 1)
Quarter: 2013Q1

REPORT INFORMATION
  Report Type: Spontaneous
  Country: US (occurrence: None)
  Receive Date: 20130123
  Receipt Date: 20130123
  Transmission Date: 20140127
  Serious: No
  Sender: FDA-Public Use
  Company Number: None

PATIENT
  Age: 36 Year
  Sex: Male
  Weight: 97.52 kg

DRUGS (1)
  1. VENLAFAXINE [Suspect]
     Indication: MYALGIA
     Dates: start: 20130119, end: 20130121

REACTIONS (6)
  - Drug ineffective [None]
  - Feeling abnormal [None]
  - Dysarthria [None]
  - Myalgia [None]
  - Pain [None]
  - Headache [None]
